FAERS Safety Report 5215715-5 (Version None)
Quarter: 2007Q1

REPORT INFORMATION
  Report Type: 
  Country: None (occurrence: None)
  Receive Date: 20070117
  Receipt Date: 20070111
  Transmission Date: 20070707
  Serious: Yes (Hospitalization, Other)
  Sender: FDA-Public Use
  Company Number: FRWYE136212JAN07

PATIENT
  Age: 6 Year
  Sex: Male

DRUGS (5)
  1. ADVIL [Suspect]
     Indication: PYREXIA
     Dosage: 1 DOSE 20 KGS 3 TIMES PER DAY ORAL
     Route: 048
     Dates: start: 20061020, end: 20061022
  2. CARBOCISTEINE (CARBOCISTEINE, , 0) [Suspect]
     Indication: DYSPNOEA
     Dosage: ORAL
     Route: 048
     Dates: start: 20061020, end: 20061022
  3. ACETAMINOPHEN [Suspect]
     Indication: PYREXIA
     Dosage: ORAL
     Route: 048
     Dates: start: 20061020
  4. MOTILIUM [Suspect]
     Indication: DYSPNOEA
     Dosage: ORAL
     Route: 048
     Dates: start: 20061020, end: 20061022
  5. MOTILIUM [Suspect]
     Indication: PYREXIA
     Dosage: ORAL
     Route: 048
     Dates: start: 20061020, end: 20061022

REACTIONS (12)
  - BLOOD CHLORIDE DECREASED [None]
  - BLOOD CREATININE DECREASED [None]
  - BLOOD GLUCOSE INCREASED [None]
  - BLOOD SODIUM DECREASED [None]
  - BLOOD UREA INCREASED [None]
  - C-REACTIVE PROTEIN INCREASED [None]
  - HAEMOGLOBIN DECREASED [None]
  - LOBAR PNEUMONIA [None]
  - PATHOGEN RESISTANCE [None]
  - PLATELET COUNT INCREASED [None]
  - PNEUMONIA PNEUMOCOCCAL [None]
  - PNEUMONIA STREPTOCOCCAL [None]
